FAERS Safety Report 15769073 (Version 4)
Quarter: 2019Q2

REPORT INFORMATION
  Report Type: Spontaneous
  Country: AT (occurrence: AT)
  Receive Date: 20181228
  Receipt Date: 20190529
  Transmission Date: 20190711
  Serious: Yes (Other)
  Sender: FDA-Public Use
  Company Number: AT-ROCHE-2235697

PATIENT
  Age: 61 Year
  Sex: Female

DRUGS (20)
  1. TAFINLAR [Suspect]
     Active Substance: DABRAFENIB MESYLATE
     Indication: MALIGNANT MELANOMA
     Dosage: 50 MG , BID
     Route: 065
     Dates: start: 20180822
  2. TAFINLAR [Suspect]
     Active Substance: DABRAFENIB MESYLATE
     Dosage: 50 MG, BID
     Route: 065
     Dates: start: 20160728, end: 20160804
  3. CYRAMZA [Suspect]
     Active Substance: RAMUCIRUMAB
     Indication: CHEMOTHERAPY
     Route: 065
     Dates: start: 201706, end: 201708
  4. DOCETAXEL. [Suspect]
     Active Substance: DOCETAXEL
     Indication: OFF LABEL USE
  5. TECENTRIQ [Suspect]
     Active Substance: ATEZOLIZUMAB
     Indication: OFF LABEL USE
     Route: 065
  6. CISPLATIN. [Suspect]
     Active Substance: CISPLATIN
     Indication: PRODUCT USED FOR UNKNOWN INDICATION
     Route: 065
  7. DOCETAXEL. [Suspect]
     Active Substance: DOCETAXEL
     Indication: LUNG ADENOCARCINOMA
  8. LIXIANA [Concomitant]
     Active Substance: EDOXABAN TOSYLATE
     Indication: OFF LABEL USE
  9. CISPLATIN. [Suspect]
     Active Substance: CISPLATIN
     Indication: OFF LABEL USE
  10. VINORELBINE [Suspect]
     Active Substance: VINORELBINE\VINORELBINE TARTRATE
     Indication: OFF LABEL USE
     Dosage: (ON 8TH DAY)
     Route: 065
  11. CYRAMZA [Suspect]
     Active Substance: RAMUCIRUMAB
     Indication: LUNG ADENOCARCINOMA
  12. MEKINIST [Suspect]
     Active Substance: TRAMETINIB DIMETHYL SULFOXIDE
     Indication: LUNG ADENOCARCINOMA
     Route: 065
     Dates: start: 20180822
  13. CYRAMZA [Suspect]
     Active Substance: RAMUCIRUMAB
     Indication: OFF LABEL USE
  14. TECENTRIQ [Suspect]
     Active Substance: ATEZOLIZUMAB
     Indication: LUNG ADENOCARCINOMA
     Route: 065
     Dates: start: 201805, end: 201807
  15. MEKINIST [Suspect]
     Active Substance: TRAMETINIB DIMETHYL SULFOXIDE
     Indication: MALIGNANT MELANOMA
     Route: 065
     Dates: start: 201607, end: 201707
  16. DOCETAXEL. [Suspect]
     Active Substance: DOCETAXEL
     Indication: CHEMOTHERAPY
     Route: 065
     Dates: start: 201706, end: 201708
  17. MEKINIST [Suspect]
     Active Substance: TRAMETINIB DIMETHYL SULFOXIDE
     Indication: OFF LABEL USE
     Route: 065
     Dates: start: 20160728, end: 20160804
  18. VINORELBINE [Suspect]
     Active Substance: VINORELBINE\VINORELBINE TARTRATE
     Indication: PRODUCT USED FOR UNKNOWN INDICATION
     Dosage: (ON FIRST DAY)
     Route: 065
  19. TAFINLAR [Suspect]
     Active Substance: DABRAFENIB MESYLATE
     Indication: OFF LABEL USE
     Route: 065
     Dates: start: 201607, end: 201706
  20. LIXIANA [Concomitant]
     Active Substance: EDOXABAN TOSYLATE
     Indication: ANTICOAGULANT THERAPY
     Route: 065
     Dates: start: 201804

REACTIONS (12)
  - Infection [Unknown]
  - Pyrexia [Unknown]
  - Inflammatory marker increased [Unknown]
  - Pulmonary embolism [Unknown]
  - Haemangioma of bone [Unknown]
  - Off label use [Unknown]
  - Febrile infection [Recovered/Resolved]
  - Interstitial lung disease [Unknown]
  - Pneumonia [Recovered/Resolved]
  - Splenomegaly [Unknown]
  - Product use in unapproved indication [Unknown]
  - Alveolitis [Unknown]

NARRATIVE: CASE EVENT DATE: 201607
